FAERS Safety Report 7782220-1 (Version None)
Quarter: 2011Q3

REPORT INFORMATION
  Report Type: 
  Country: None (occurrence: None)
  Receive Date: 20110927
  Receipt Date: 20110923
  Transmission Date: 20111222
  Serious: Yes (Hospitalization, Other)
  Sender: FDA-Public Use
  Company Number: FR-PFIZER INC-2011228499

PATIENT
  Age: 87 Year
  Sex: Male

DRUGS (6)
  1. REPAGLINIDE [Suspect]
     Dosage: 1 MG, UNK
     Route: 048
     Dates: start: 20110525, end: 20110617
  2. PANTOPRAZOLE [Suspect]
     Dosage: 40 MG, UNK
     Route: 048
     Dates: start: 20110525, end: 20110612
  3. ASPIRIN [Concomitant]
     Dosage: UNK
     Dates: start: 20110501
  4. ATORVASTATIN CALCIUM [Suspect]
     Dosage: 40 MG, UNK
     Route: 048
     Dates: start: 20110525, end: 20110624
  5. CORDARONE [Concomitant]
     Dosage: 200 MG, UNK
     Route: 048
  6. CALCIPARINE [Concomitant]
     Dosage: UNK
     Dates: start: 20110501

REACTIONS (3)
  - PROCTOCOLITIS [None]
  - COLITIS [None]
  - ANAL SPHINCTER ATONY [None]
